FAERS Safety Report 8544996-5 (Version None)
Quarter: 2012Q3

REPORT INFORMATION
  Report Type: 
  Country: None (occurrence: None)
  Receive Date: 20120727
  Receipt Date: 20120725
  Transmission Date: 20120928
  Serious: Yes (Other)
  Sender: FDA-Public Use
  Company Number: US-GLAXOSMITHKLINE-A0987218A

PATIENT
  Age: 47 Year
  Sex: Female

DRUGS (1)
  1. FLOLAN [Suspect]
     Indication: PRODUCT USED FOR UNKNOWN INDICATION
     Dosage: 79NGKM CONTINUOUS
     Route: 042
     Dates: start: 20031103

REACTIONS (10)
  - FATIGUE [None]
  - FALL [None]
  - VICTIM OF ABUSE [None]
  - MEDICAL DEVICE COMPLICATION [None]
  - PERICARDIAL EFFUSION [None]
  - DIZZINESS [None]
  - DEVICE DISLOCATION [None]
  - VISION BLURRED [None]
  - LUNG DISORDER [None]
  - HEADACHE [None]
